FAERS Safety Report 6900549-3 (Version None)
Quarter: 2010Q3

REPORT INFORMATION
  Report Type: 
  Country: None (occurrence: None)
  Receive Date: 20100803
  Receipt Date: 20100723
  Transmission Date: 20110219
  Serious: Yes (Other)
  Sender: FDA-Public Use
  Company Number: US-JNJFOC-20100707964

PATIENT
  Sex: Female
  Weight: 62.6 kg

DRUGS (5)
  1. REMICADE [Suspect]
     Indication: CROHN'S DISEASE
     Route: 042
  2. PREDNISONE [Concomitant]
  3. PRILOSEC [Concomitant]
  4. IMODIUM [Concomitant]
     Indication: DIARRHOEA
  5. INTRAVENOUS IRON [Concomitant]
     Indication: ANAEMIA

REACTIONS (5)
  - ANAEMIA [None]
  - CONDITION AGGRAVATED [None]
  - FATIGUE [None]
  - PAIN [None]
  - WEIGHT INCREASED [None]
